FAERS Safety Report 7715026 (Version 3)
Quarter: 2015Q3

REPORT INFORMATION
  Report Type: Report from Study
  Country: US (occurrence: US)
  Receive Date: 20101216
  Receipt Date: 20150903
  Transmission Date: 20151125
  Serious: Yes (Hospitalization, Other)
  Sender: FDA-Public Use
  Company Number: US-AMGEN-USASP2010008714

PATIENT
  Age: 47 Year
  Sex: Female

DRUGS (1)
  1. ENBREL [Suspect]
     Active Substance: ETANERCEPT
     Indication: PSORIATIC ARTHROPATHY
     Dosage: UNK
     Route: 065
     Dates: start: 20040101, end: 2008

REACTIONS (10)
  - Spinal fracture [Recovered/Resolved]
  - Postoperative wound infection [Not Recovered/Not Resolved]
  - Staphylococcal infection [Unknown]
  - Post procedural complication [Recovered/Resolved]
  - Road traffic accident [Recovered/Resolved]
  - Psoriasis [Unknown]
  - Psoriatic arthropathy [Not Recovered/Not Resolved]
  - Injection site pain [Unknown]
  - Pseudarthrosis [Recovered/Resolved]
  - Furuncle [Recovered/Resolved]

NARRATIVE: CASE EVENT DATE: 2004
